FAERS Safety Report 7414131-5 (Version None)
Quarter: 2011Q2

REPORT INFORMATION
  Report Type: 
  Country: None (occurrence: None)
  Receive Date: 20110414
  Receipt Date: 20110414
  Transmission Date: 20111010
  Serious: Yes (Other)
  Sender: FDA-Public Use
  Company Number: CN-PFIZER INC-2011081645

PATIENT
  Age: 20 Year
  Sex: Female

DRUGS (2)
  1. ZELDOX [Suspect]
     Indication: SCHIZOPHRENIA
  2. ZELDOX [Suspect]
     Indication: DEPRESSION
     Dosage: 60 MG, PER DAY
     Route: 048
     Dates: start: 20110201

REACTIONS (1)
  - UPPER AIRWAY OBSTRUCTION [None]
